FAERS Safety Report 13890195 (Version 2)
Quarter: 2018Q3

REPORT INFORMATION
  Report Type: Spontaneous
  Country: JP (occurrence: JP)
  Receive Date: 20170822
  Receipt Date: 20180709
  Transmission Date: 20181010
  Serious: Yes (Other)
  Sender: FDA-Public Use
  Company Number: JP-ELI_LILLY_AND_COMPANY-JP201708007832

PATIENT
  Age: 65 Year
  Sex: Male

DRUGS (2)
  1. CYRAMZA [Suspect]
     Active Substance: RAMUCIRUMAB
     Indication: GASTRIC CANCER
     Route: 042
  2. MELPHALAN. [Concomitant]
     Active Substance: MELPHALAN
     Indication: GASTRIC CANCER
     Route: 042

REACTIONS (2)
  - Ileal perforation [Unknown]
  - Peritonitis [Unknown]

NARRATIVE: CASE EVENT DATE: 201708
